FAERS Safety Report 13287999 (Version 1)
Quarter: 2017Q1

REPORT INFORMATION
  Report Type: Spontaneous
  Country: US (occurrence: US)
  Receive Date: 20170302
  Receipt Date: 20170302
  Transmission Date: 20170428
  Serious: No
  Sender: FDA-Public Use
  Company Number: US-BRISTOL-MYERS SQUIBB COMPANY-BMS-2017-016819

PATIENT
  Age: 78 Year
  Sex: Female

DRUGS (1)
  1. EMPLICITI [Suspect]
     Active Substance: ELOTUZUMAB
     Indication: LIGHT CHAIN ANALYSIS INCREASED
     Dosage: UNK
     Route: 065

REACTIONS (1)
  - Monoclonal immunoglobulin present [Unknown]
